FAERS Safety Report 19858395 (Version 1)
Quarter: 2021Q3

REPORT INFORMATION
  Report Type: Spontaneous
  Country: US (occurrence: US)
  Receive Date: 20210921
  Receipt Date: 20210921
  Transmission Date: 20211014
  Serious: No
  Sender: FDA-Public Use
  Company Number: US-HETERO-HET2021US01753

PATIENT

DRUGS (1)
  1. LOSARTAN. [Suspect]
     Active Substance: LOSARTAN
     Indication: PRODUCT USED FOR UNKNOWN INDICATION
     Dosage: 100 MG (BOTTLE OF 90 TABLETS)
     Route: 048

REACTIONS (3)
  - Dizziness [Unknown]
  - Back pain [Unknown]
  - Nasal congestion [Unknown]
